FAERS Safety Report 4850340-7 (Version None)
Quarter: 2005Q4

REPORT INFORMATION
  Report Type: 
  Country: None (occurrence: None)
  Receive Date: 20051123
  Receipt Date: 20051010
  Transmission Date: 20060501
  Serious: No
  Sender: FDA-Public Use
  Company Number: 218471

PATIENT
  Age: 51 Year
  Sex: Female

DRUGS (3)
  1. RAPTIVA [Suspect]
     Indication: PSORIASIS
     Dosage: 0.6 ML, 1/WEEK, SUBCUTANEOUS
     Route: 058
     Dates: start: 20050801
  2. PREVACID [Concomitant]
  3. PHENTERMINE [Concomitant]

REACTIONS (2)
  - BACK PAIN [None]
  - CHROMATURIA [None]
